FAERS Safety Report 8511826 (Version 3)
Quarter: 2013Q4

REPORT INFORMATION
  Report Type: Spontaneous
  Country: US (occurrence: US)
  Receive Date: 20120413
  Receipt Date: 20131011
  Transmission Date: 20140711
  Serious: Yes (Hospitalization, Other)
  Sender: FDA-Public Use
  Company Number: US-ASTRAZENECA-2011SE41542

PATIENT
  Age: 58 Year
  Sex: Female

DRUGS (11)
  1. NEXIUM [Suspect]
     Indication: GASTROOESOPHAGEAL REFLUX DISEASE
     Route: 048
     Dates: start: 1990, end: 2011
  2. NEXIUM [Suspect]
     Indication: GASTROOESOPHAGEAL REFLUX DISEASE
     Route: 048
     Dates: start: 2001
  3. ALBUTEROL [Concomitant]
     Indication: CHRONIC OBSTRUCTIVE PULMONARY DISEASE
     Dosage: EVERY 6 HRS
  4. XANAX [Concomitant]
     Indication: ANXIETY
  5. AMLODIPINE [Concomitant]
     Indication: HYPERTENSION
  6. ASPIRIN [Concomitant]
     Indication: PROPHYLAXIS
  7. CARBAMAZEPINE [Concomitant]
     Dosage: 200 MG EVERY EIGHT HOURS.
  8. PANTOPRAZOLE [Concomitant]
     Indication: GASTROOESOPHAGEAL REFLUX DISEASE
  9. PHENOBARBITAL [Concomitant]
     Indication: CONVULSION
  10. SEROQUEL [Concomitant]
     Indication: DEPRESSION
  11. SEROQUEL [Concomitant]
     Indication: BIPOLAR DISORDER

REACTIONS (13)
  - Convulsion [Unknown]
  - Mental disorder [Unknown]
  - Urinary tract infection [Unknown]
  - Osteoporosis [Unknown]
  - Osteopenia [Unknown]
  - Foot fracture [Unknown]
  - Bulimia nervosa [Unknown]
  - Chronic obstructive pulmonary disease [Unknown]
  - Atrophy [Unknown]
  - Hypothyroidism [Unknown]
  - Vitamin D deficiency [Unknown]
  - Neuropathy peripheral [Unknown]
  - Depression [Unknown]
